FAERS Safety Report 6241352-X (Version None)
Quarter: 2009Q2

REPORT INFORMATION
  Report Type: 
  Country: None (occurrence: None)
  Receive Date: 20090619
  Receipt Date: 20090619
  Transmission Date: 20091009
  Serious: No
  Sender: FDA-Public Use
  Company Number: None

PATIENT
  Sex: Male
  Weight: 77.1115 kg

DRUGS (1)
  1. ZICAM NO-DRIP LQUID NASAL GEL ZINCUM GLUCONIUM 2X ZICAM [Suspect]
     Indication: NASOPHARYNGITIS
     Dates: start: 20050101, end: 20070101

REACTIONS (3)
  - DYSGEUSIA [None]
  - HYPOGEUSIA [None]
  - PAROSMIA [None]
